FAERS Safety Report 4329891-X (Version None)
Quarter: 2004Q1

REPORT INFORMATION
  Report Type: 
  Country: None (occurrence: None)
  Receive Date: 20040329
  Receipt Date: 20031205
  Transmission Date: 20041129
  Serious: No
  Sender: FDA-Public Use
  Company Number: 03P-163-0239149-00

PATIENT
  Age: 72 Year
  Sex: Female
  Weight: 58.9676 kg

DRUGS (4)
  1. HUMIRA [Suspect]
     Indication: RHEUMATOID ARTHRITIS
     Dosage: 40 MG, 1 IN 2 WK, SUBCUTANEOUS
     Route: 058
     Dates: start: 20030701, end: 20031101
  2. METHOTREXATE [Concomitant]
  3. FOLIC ACID [Concomitant]
  4. TRILISATE [Concomitant]

REACTIONS (5)
  - BLOOD PRESSURE INCREASED [None]
  - JOINT SWELLING [None]
  - PRURITUS [None]
  - RASH GENERALISED [None]
  - URTICARIA [None]
